FAERS Safety Report 8986664 (Version 1)
Quarter: 2012Q4

REPORT INFORMATION
  Report Type: 
  Country: JP (occurrence: JP)
  Receive Date: 20121227
  Receipt Date: 20121227
  Transmission Date: 20130627
  Serious: Yes (Death)
  Sender: FDA-Public Use
  Company Number: PHHY2012JP120087

PATIENT
  Age: 79 Year
  Sex: Male

DRUGS (1)
  1. EXELON PATCH [Suspect]
     Indication: COGNITIVE DISORDER
     Dosage: UNK UKN, UNK
     Route: 062
     Dates: start: 20120508, end: 201212

REACTIONS (1)
  - Lung neoplasm malignant [Fatal]
